FAERS Safety Report 5287827-1 (Version None)
Quarter: 2007Q1

REPORT INFORMATION
  Report Type: 
  Country: None (occurrence: None)
  Receive Date: 20070112
  Receipt Date: 20060320
  Transmission Date: 20070707
  Serious: Yes (Other)
  Sender: FDA-Public Use
  Company Number: PHEH2006US03766

PATIENT
  Sex: Female

DRUGS (1)
  1. FOCALIN [Suspect]
     Indication: SOMNOLENCE
     Dosage: 10 MG,QD,ORAL
     Route: 048
     Dates: start: 20060306

REACTIONS (5)
  - DIABETES MELLITUS [None]
  - DRUG WITHDRAWAL SYNDROME [None]
  - EXOPHTHALMOS [None]
  - NERVOUSNESS [None]
  - OVERDOSE [None]
